FAERS Safety Report 23636488 (Version 3)
Quarter: 2024Q2

REPORT INFORMATION
  Report Type: Spontaneous
  Country: AU (occurrence: AU)
  Receive Date: 20240315
  Receipt Date: 20240628
  Transmission Date: 20240716
  Serious: Yes (Hospitalization)
  Sender: FDA-Public Use
  Company Number: AU-TAKEDA-2024TUS022082

PATIENT
  Age: 7 Decade
  Sex: Male

DRUGS (4)
  1. PANTOPRAZOLE [Suspect]
     Active Substance: PANTOPRAZOLE
     Indication: Gastrooesophageal reflux disease
     Dosage: 40 MILLIGRAM, QD
     Route: 065
  2. AMITRIPTYLINE [Concomitant]
     Active Substance: AMITRIPTYLINE
     Dosage: 10 MILLIGRAM, QD
     Route: 065
  3. METOPROLOL [Concomitant]
     Active Substance: METOPROLOL
     Dosage: 50 MILLIGRAM, QD
  4. ROSUVASTATIN [Concomitant]
     Active Substance: ROSUVASTATIN
     Dosage: 20 MILLIGRAM

REACTIONS (6)
  - Salmonella bacteraemia [Recovered/Resolved]
  - Infective aneurysm [Recovered/Resolved]
  - Vascular pseudoaneurysm [Recovered/Resolved]
  - Peripheral artery aneurysm [Recovered/Resolved]
  - Deep vein thrombosis [Recovered/Resolved]
  - Vascular pseudoaneurysm ruptured [Recovered/Resolved]
